FAERS Safety Report 8764863 (Version 5)
Quarter: 2013Q1

REPORT INFORMATION
  Report Type: Spontaneous
  Country: US (occurrence: US)
  Receive Date: 20120901
  Receipt Date: 20130114
  Transmission Date: 20140127
  Serious: Yes (Other)
  Sender: FDA-Public Use
  Company Number: US-009507513-1208USA007224

PATIENT
  Age: 42 None
  Sex: Male
  Weight: 94.8 kg

DRUGS (7)
  1. PEG-INTRON [Suspect]
     Indication: HEPATITIS C
     Dosage: 150 MICROGRAM, QW
     Route: 058
     Dates: start: 20120313
  2. REBETOL [Suspect]
     Indication: HEPATITIS C
     Dosage: UNK
     Dates: start: 20120313
  3. VICTRELIS [Suspect]
     Indication: HEPATITIS C
     Dosage: 4 DF, TID
     Route: 048
     Dates: start: 20120312, end: 20121113
  4. CARISOPRODOL [Concomitant]
     Dosage: 350 MG, QD
     Route: 048
  5. RIBASPHERE [Suspect]
     Dosage: 3 DF, BID
     Route: 048
  6. ALPRAZOLAM [Concomitant]
     Dosage: 2 MG, QD
     Route: 048
  7. ACETAMINOPHEN (+) HYDROCODONE BITARTRATE [Concomitant]
     Route: 048

REACTIONS (27)
  - Depressed mood [Unknown]
  - Depressed mood [Unknown]
  - Paranoia [Unknown]
  - Dyspnoea [Unknown]
  - Malaise [Unknown]
  - Tremor [Unknown]
  - Cold sweat [Not Recovered/Not Resolved]
  - Wheezing [Unknown]
  - Renal pain [Unknown]
  - Pain [Unknown]
  - Abdominal pain [Unknown]
  - Abdominal pain [Unknown]
  - Abdominal pain lower [Unknown]
  - Depression [Unknown]
  - Decreased appetite [Unknown]
  - Pruritus [Unknown]
  - Back pain [Unknown]
  - Irritability [Unknown]
  - Vomiting [Unknown]
  - Diarrhoea [Unknown]
  - Vision blurred [Unknown]
  - Reading disorder [Unknown]
  - Disturbance in attention [Not Recovered/Not Resolved]
  - Depression [Unknown]
  - Substance use [Unknown]
  - Anxiety [Not Recovered/Not Resolved]
  - Nervousness [Not Recovered/Not Resolved]
